FAERS Safety Report 5066096-1 (Version None)
Quarter: 2006Q3

REPORT INFORMATION
  Report Type: 
  Country: None (occurrence: None)
  Receive Date: 20060725
  Receipt Date: 20060709
  Transmission Date: 20061208
  Serious: Yes (Hospitalization)
  Sender: FDA-Public Use
  Company Number: 225368

PATIENT
  Age: 57 Year
  Sex: Female

DRUGS (3)
  1. AVASTIN [Suspect]
     Indication: COLON CANCER
     Dosage: SEE IMAGE
     Dates: start: 20051222, end: 20060614
  2. CAPECITABINE                (CAPECITABINE) [Concomitant]
     Indication: COLON CANCER
     Dosage: 2000 MG, ORAL
     Route: 048
     Dates: start: 20051222
  3. OXALIPLATIN (OXALIPLATIN) [Suspect]
     Indication: COLON CANCER
     Dosage: 140 MG, Q3W, INTRAVENOUS
     Route: 042
     Dates: start: 20051222

REACTIONS (5)
  - ABDOMINAL DISTENSION [None]
  - CATHETER RELATED COMPLICATION [None]
  - GASTROINTESTINAL DISORDER [None]
  - PYREXIA [None]
  - WHITE BLOOD CELL COUNT INCREASED [None]
